FAERS Safety Report 9536586 (Version 2)
Quarter: 2013Q3

REPORT INFORMATION
  Report Type: Spontaneous
  Country: US (occurrence: US)
  Receive Date: 20130919
  Receipt Date: 20130919
  Transmission Date: 20140515
  Serious: Yes (Other)
  Sender: FDA-Public Use
  Company Number: US-JNJFOC-20130306471

PATIENT
  Sex: Female

DRUGS (12)
  1. TOPAMAX [Suspect]
     Indication: EPILEPSY
     Dosage: 200-500 MG EVERY DAY
     Route: 048
     Dates: start: 2005
  2. LAMICTAL [Suspect]
     Indication: EPILEPSY
     Dosage: 600-800 MG EVERY DAY
     Route: 048
  3. XANAX [Suspect]
     Indication: ANXIETY
     Dosage: 0.25 MG TO 1 MG EVERY DAY
     Route: 048
  4. AMBIEN [Suspect]
     Indication: INSOMNIA
     Dosage: 50 MG EVERY DAY
     Route: 048
  5. TRAZODONE [Suspect]
     Indication: INSOMNIA
     Dosage: 100-200 MG EVERY DAY
     Route: 048
  6. LEXAPRO [Suspect]
     Indication: DEPRESSION
     Dosage: 25 MG EVERY DAY
     Route: 048
  7. LEXAPRO [Suspect]
     Indication: ANXIETY
     Dosage: 25 MG EVERY DAY
     Route: 048
  8. ZOLOFT [Suspect]
     Indication: DEPRESSION
     Dosage: 2010 TILL PRESENT
     Route: 048
  9. ZOLOFT [Suspect]
     Indication: ANXIETY
     Dosage: 2010 TILL PRESENT
     Route: 048
  10. DILANTIN [Suspect]
     Indication: PRODUCT USED FOR UNKNOWN INDICATION
     Route: 048
  11. Z-PACK [Suspect]
     Indication: PRODUCT USED FOR UNKNOWN INDICATION
     Route: 065
  12. METFORMIN [Suspect]
     Indication: PRODUCT USED FOR UNKNOWN INDICATION
     Route: 065

REACTIONS (4)
  - Premature labour [Recovered/Resolved]
  - Exposure during pregnancy [Recovered/Resolved]
  - Postpartum depression [Not Recovered/Not Resolved]
  - Emotional disorder [Unknown]
